FAERS Safety Report 23936516 (Version 1)
Quarter: 2024Q2

REPORT INFORMATION
  Report Type: Spontaneous
  Country: US (occurrence: US)
  Receive Date: 20240604
  Receipt Date: 20240604
  Transmission Date: 20240716
  Serious: No
  Sender: FDA-Public Use
  Company Number: US-STERISCIENCE B.V.-2023-ST-001795

PATIENT
  Age: 39 Year
  Sex: Female

DRUGS (1)
  1. METOPROLOL [Suspect]
     Active Substance: METOPROLOL
     Indication: Arrhythmia
     Dosage: UNK
     Route: 065

REACTIONS (3)
  - Maternal exposure during pregnancy [Unknown]
  - Off label use [Unknown]
  - No adverse event [Unknown]
